FAERS Safety Report 11438374 (Version 1)
Quarter: 2015Q3

REPORT INFORMATION
  Report Type: Spontaneous
  Country: US (occurrence: US)
  Receive Date: 20150901
  Receipt Date: 20150901
  Transmission Date: 20151125
  Serious: No
  Sender: FDA-Public Use
  Company Number: US-ROCHE-1156255

PATIENT
  Sex: Male

DRUGS (5)
  1. PROZAC [Concomitant]
     Active Substance: FLUOXETINE HYDROCHLORIDE
     Route: 065
  2. RIBAVIRIN. [Suspect]
     Active Substance: RIBAVIRIN
     Indication: HEPATITIS C
     Dosage: IN DIVIDED DOSES OF 600 MG
     Route: 065
     Dates: start: 20121112
  3. VICODIN [Concomitant]
     Active Substance: ACETAMINOPHEN\HYDROCODONE BITARTRATE
     Route: 065
  4. ATIVAN [Concomitant]
     Active Substance: LORAZEPAM
  5. PEGASYS [Suspect]
     Active Substance: PEGINTERFERON ALFA-2A
     Indication: HEPATITIS C
     Route: 065
     Dates: start: 20121112

REACTIONS (18)
  - Dyspnoea [Unknown]
  - Cough [Not Recovered/Not Resolved]
  - Purulence [Unknown]
  - Headache [Unknown]
  - Drug dose omission [Unknown]
  - Abdominal pain upper [Unknown]
  - Stress [Unknown]
  - Hyperhidrosis [Unknown]
  - Anger [Unknown]
  - Epistaxis [Unknown]
  - Back pain [Unknown]
  - Wheezing [Unknown]
  - Oropharyngeal pain [Unknown]
  - Chills [Unknown]
  - Thermal burn [Unknown]
  - Pyrexia [Unknown]
  - Neck pain [Unknown]
  - Tinnitus [Unknown]
